FAERS Safety Report 8172038-2 (Version None)
Quarter: 2012Q1

REPORT INFORMATION
  Report Type: 
  Country: None (occurrence: None)
  Receive Date: 20120228
  Receipt Date: 20120223
  Transmission Date: 20120608
  Serious: Yes (Hospitalization, Other)
  Sender: FDA-Public Use
  Company Number: US-PFIZER INC-2004210423US

PATIENT
  Sex: Female

DRUGS (9)
  1. XANAX [Suspect]
     Dosage: 1 MG, UNK
  2. XANAX [Suspect]
     Indication: BALANCE DISORDER
     Dosage: 1 MG, UNK
  3. XANAX [Suspect]
     Dosage: .5 MG, UNK
  4. XANAX [Suspect]
     Dosage: .5 MG, UNK
  5. XANAX [Suspect]
     Indication: EAR DISORDER
     Dosage: UNK
     Dates: start: 20010401, end: 20040210
  6. XANAX [Suspect]
     Dosage: 1 MG, 2X/DAY
  7. LEXAPRO [Concomitant]
     Dosage: 10 MG, 1X/DAY
  8. XANAX [Suspect]
     Dosage: .25 MG, UNK
  9. ALPRAZOLAM [Suspect]

REACTIONS (5)
  - SUICIDAL IDEATION [None]
  - AMNESIA [None]
  - TINNITUS [None]
  - LOSS OF CONSCIOUSNESS [None]
  - DRUG WITHDRAWAL CONVULSIONS [None]
